FAERS Safety Report 5661088-3 (Version None)
Quarter: 2008Q2

REPORT INFORMATION
  Report Type: 
  Country: None (occurrence: None)
  Receive Date: 20080204
  Receipt Date: 20071210
  Transmission Date: 20081010
  Serious: Yes (Other)
  Sender: FDA-Public Use
  Company Number: PHEH2007US15835

PATIENT
  Age: 87 Year
  Sex: Female

DRUGS (9)
  1. EXELON [Suspect]
     Indication: DEMENTIA ALZHEIMER'S TYPE
     Dosage: 4.6 MG/DAY, TRANSDERMAL
     Route: 062
     Dates: start: 20070901
  2. KEPPRA [Suspect]
     Indication: ORGASM ABNORMAL
     Dosage: 250 MG, BID 500 MG, Q12H
  3. DILANTIN [Suspect]
     Indication: ORGASM ABNORMAL
  4. MAXZIDE [Suspect]
     Indication: HYPERTENSION
     Dosage: 37.5 MG/25 MG, QD, ORAL
     Route: 048
  5. HALDOL [Concomitant]
  6. ASPIRIN [Concomitant]
  7. CLARITIN [Concomitant]
  8. PREMARIN /NEZ/ (ESTROGENS CONUGATED) [Concomitant]
  9. LEVOTHROID [Concomitant]

REACTIONS (11)
  - BALANCE DISORDER [None]
  - BLOOD PRESSURE DECREASED [None]
  - CARDIOVASCULAR INSUFFICIENCY [None]
  - EXCORIATION [None]
  - FALL [None]
  - FEELINGS OF WORTHLESSNESS [None]
  - ORGASM ABNORMAL [None]
  - RASH [None]
  - RESPIRATORY RATE INCREASED [None]
  - SEDATION [None]
  - SEXUAL DYSFUNCTION [None]
